FAERS Safety Report 9623532 (Version 2)
Quarter: 2013Q4

REPORT INFORMATION
  Report Type: Spontaneous
  Country: US (occurrence: US)
  Receive Date: 20131015
  Receipt Date: 20131024
  Transmission Date: 20140711
  Serious: Yes (Life-Threatening, Hospitalization, Disabling, Other)
  Sender: FDA-Public Use
  Company Number: US-BAYER-2013-122876

PATIENT
  Age: 78 Year
  Sex: Male

DRUGS (4)
  1. AVELOX [Suspect]
     Indication: DIVERTICULITIS
     Dosage: 400 MG, QD
  2. CIPRO [Suspect]
  3. FLAGYL [Suspect]
  4. COUMADIN [Concomitant]

REACTIONS (8)
  - Malaise [Not Recovered/Not Resolved]
  - Decreased appetite [Not Recovered/Not Resolved]
  - Pyrexia [Not Recovered/Not Resolved]
  - Arthralgia [Not Recovered/Not Resolved]
  - Hypertension [Not Recovered/Not Resolved]
  - Pyrexia [Not Recovered/Not Resolved]
  - Pyrexia [Not Recovered/Not Resolved]
  - Drug hypersensitivity [None]
